FAERS Safety Report 9149687 (Version 1)
Quarter: 2013Q1

REPORT INFORMATION
  Report Type: Spontaneous
  Country: GR (occurrence: GR)
  Receive Date: 20130308
  Receipt Date: 20130308
  Transmission Date: 20140127
  Serious: Yes (Hospitalization, Other)
  Sender: FDA-Public Use
  Company Number: PHHY2013GR021359

PATIENT
  Age: 44 Year
  Sex: Male

DRUGS (6)
  1. FLUCONAZOLE [Suspect]
     Indication: MENINGITIS CRYPTOCOCCAL
     Dosage: 400 MG, PER DAY
     Route: 048
  2. FLUCONAZOLE [Suspect]
     Dosage: 200 MG, PER DAY
     Route: 048
  3. AMPHOTERICIN B [Suspect]
     Indication: MENINGITIS CRYPTOCOCCAL
     Dosage: 3 MG/KG, UNK
  4. LOPINAVIR W/RITONAVIR [Concomitant]
     Indication: ANTIRETROVIRAL THERAPY
  5. TENOFOVIR [Concomitant]
     Indication: ANTIRETROVIRAL THERAPY
  6. EMTRICITABINE [Concomitant]
     Indication: ANTIRETROVIRAL THERAPY

REACTIONS (5)
  - Meningitis cryptococcal [Recovered/Resolved]
  - Pleocytosis [Recovered/Resolved]
  - Neurological decompensation [Recovered/Resolved]
  - Adrenal insufficiency [Unknown]
  - Drug ineffective [Unknown]
